FAERS Safety Report 15326837 (Version 1)
Quarter: 2018Q3

REPORT INFORMATION
  Report Type: Spontaneous
  Country: US (occurrence: US)
  Receive Date: 20180828
  Receipt Date: 20180828
  Transmission Date: 20181010
  Serious: Yes (Other)
  Sender: FDA-Public Use
  Company Number: US-SA-2018SA164746

PATIENT
  Age: 59 Year
  Sex: Female
  Weight: 63.5 kg

DRUGS (6)
  1. PLATINOL [Concomitant]
     Active Substance: CISPLATIN
     Dosage: UNK, UNK
     Route: 065
  2. CYCLOPHOSPHAMIDE. [Concomitant]
     Active Substance: CYCLOPHOSPHAMIDE
     Dosage: UNK, UNK
     Route: 065
  3. TAXOTERE [Suspect]
     Active Substance: DOCETAXEL
     Indication: BREAST CANCER FEMALE
     Dosage: UNK, UNK
     Route: 042
     Dates: start: 200606, end: 200606
  4. TAXOTERE [Suspect]
     Active Substance: DOCETAXEL
     Dosage: UNK
     Route: 042
     Dates: start: 200610, end: 200610
  5. NEOSAR [Concomitant]
     Active Substance: CYCLOPHOSPHAMIDE
     Dosage: UNK, UNK
     Route: 065
  6. DOXORUBICIN [Concomitant]
     Active Substance: DOXORUBICIN
     Dosage: UNK, UNK
     Route: 065

REACTIONS (2)
  - Alopecia [Not Recovered/Not Resolved]
  - Psychological trauma [Unknown]
